FAERS Safety Report 10018353 (Version 1)
Quarter: 2014Q1

REPORT INFORMATION
  Report Type: Spontaneous
  Country: US (occurrence: None)
  Receive Date: 20140312
  Receipt Date: 20140312
  Transmission Date: 20141002
  Serious: Yes (Death)
  Sender: FDA-Public Use
  Company Number: UTC-045503

PATIENT
  Age: 58 Year
  Sex: Female

DRUGS (1)
  1. TYVASO [Suspect]
     Indication: COR PULMONALE CHRONIC
     Dosage: 54 MCG, 4 IN 1 D
     Route: 055
     Dates: start: 20111005

REACTIONS (1)
  - Death [None]
